FAERS Safety Report 19986706 (Version 3)
Quarter: 2021Q4

REPORT INFORMATION
  Report Type: Spontaneous
  Country: JP (occurrence: JP)
  Receive Date: 20211022
  Receipt Date: 20211214
  Transmission Date: 20220303
  Serious: Yes (Hospitalization, Disabling, Other)
  Sender: FDA-Public Use
  Company Number: JP-GSKNCCC-CASE-01332203_AE-50738

PATIENT
  Age: 93 Year
  Sex: Male

DRUGS (4)
  1. FLUTICASONE PROPIONATE [Suspect]
     Active Substance: FLUTICASONE PROPIONATE
     Indication: Asthma
     Dosage: 200 ?G/DAY
     Route: 055
  2. AMLODIPINE BESYLATE [Concomitant]
     Active Substance: AMLODIPINE BESYLATE
     Dosage: 2.5 MG/DAY
     Route: 048
     Dates: end: 20211019
  3. VERAPAMIL HYDROCHLORIDE [Concomitant]
     Active Substance: VERAPAMIL HYDROCHLORIDE
     Dosage: 80 MG/DAY
     Route: 048
     Dates: end: 20211019
  4. CALONAL [Concomitant]
     Active Substance: ACETAMINOPHEN
     Dosage: UNK UNK, PRN
     Route: 048

REACTIONS (2)
  - Loss of consciousness [Not Recovered/Not Resolved]
  - Cerebral infarction [Not Recovered/Not Resolved]

NARRATIVE: CASE EVENT DATE: 20211019
